FAERS Safety Report 9471054 (Version 1)
Quarter: 2013Q3

REPORT INFORMATION
  Report Type: Spontaneous
  Country: IT (occurrence: None)
  Receive Date: 20130815
  Receipt Date: 20130815
  Transmission Date: 20140515
  Serious: Yes (Other)
  Sender: FDA-Public Use
  Company Number: GER/ITL/13/0033923

PATIENT
  Age: 80 Year
  Sex: Male

DRUGS (9)
  1. CLOPIDOGREL [Suspect]
     Indication: ACUTE MYOCARDIAL INFARCTION
     Route: 048
     Dates: start: 20130227, end: 20130803
  2. CARDIOASPIRIN (ACETYLSALICYLIC ACID) [Concomitant]
  3. COAPROVEL (KARVEA HCT) [Concomitant]
  4. METFORMIN (A) (METFORMIN) [Concomitant]
  5. CONGESCOR (BB FARMA S.R.L) (BISOPROLOL) [Concomitant]
  6. TRIATEC (SANOFI-AVENTIS S.P.A) (PANADEINE CO) [Concomitant]
  7. TORVAST (PFIZER LIMITED) (ATORVASTATIN CALCIUM) [Concomitant]
  8. LANSOX (TAKEDA ITALIA S.P.A) (LANSOPRAZOLE) [Concomitant]
  9. CARDURA (PFIZER ITALIA S.R.L.) (DOXAZOSIN MESILATE) [Concomitant]

REACTIONS (1)
  - Drug ineffective [None]
